FAERS Safety Report 24748575 (Version 1)
Quarter: 2024Q4

REPORT INFORMATION
  Report Type: Spontaneous
  Country: PT (occurrence: PT)
  Receive Date: 20241218
  Receipt Date: 20241218
  Transmission Date: 20250114
  Serious: Yes (Other)
  Sender: FRESENIUS KABI
  Company Number: PT-FreseniusKabi-FK202418859

PATIENT
  Age: 25 Year
  Sex: Female

DRUGS (5)
  1. ROPIVACAINE [Suspect]
     Active Substance: ROPIVACAINE
     Indication: Nerve block
     Dosage: 80 MG OF 0.2 PERCENT ROPIVACAINE
  2. MIDAZOLAM [Suspect]
     Active Substance: MIDAZOLAM
     Indication: Sedation
  3. FENTANYL [Suspect]
     Active Substance: FENTANYL
     Indication: Induction of anaesthesia
     Dosage: LIGHT SEDATION 50 MCG, INDUCTION OF GENERAL ANESTHESIA WITH 50 MCG OF FENTANYL
  4. FENTANYL [Suspect]
     Active Substance: FENTANYL
     Indication: Sedation
  5. PROPOFOL [Suspect]
     Active Substance: PROPOFOL
     Indication: Induction of anaesthesia

REACTIONS (1)
  - Anaphylactic reaction [Recovering/Resolving]
